FAERS Safety Report 5958596-4 (Version None)
Quarter: 2008Q4

REPORT INFORMATION
  Report Type: 
  Country: None (occurrence: None)
  Receive Date: 20081119
  Receipt Date: 20081107
  Transmission Date: 20090506
  Serious: Yes (Hospitalization)
  Sender: FDA-Public Use
  Company Number: DE-PFIZER INC-2008093068

PATIENT
  Sex: Female
  Weight: 66 kg

DRUGS (5)
  1. LYRICA [Suspect]
     Indication: ANXIETY
     Dosage: DAILY DOSE:150MG
     Route: 048
     Dates: start: 20080902, end: 20081028
  2. LYRICA [Suspect]
     Indication: MYOCLONUS
  3. OMEPRAZOLE [Concomitant]
     Dates: start: 20080501
  4. LORAZEPAM [Concomitant]
     Dates: start: 20080501
  5. SIMVASTATIN [Concomitant]
     Dates: start: 20080501

REACTIONS (4)
  - AFFECT LABILITY [None]
  - ATAXIA [None]
  - DEPRESSION [None]
  - SPEECH DISORDER [None]
